FAERS Safety Report 16686189 (Version 1)
Quarter: 2019Q3

REPORT INFORMATION
  Report Type: Spontaneous
  Country: IN (occurrence: IN)
  Receive Date: 20190809
  Receipt Date: 20190809
  Transmission Date: 20191004
  Serious: Yes (Hospitalization, Other)
  Sender: FDA-Public Use
  Company Number: IN-009507513-1908IND002635

PATIENT
  Age: 16 Year
  Sex: Female
  Weight: 25.7 kg

DRUGS (11)
  1. AMINOSALICYLIC ACID [Suspect]
     Active Substance: AMINOSALICYLIC ACID
     Indication: PULMONARY TUBERCULOSIS
     Dosage: 10 GRAM, QD
     Dates: start: 20190125
  2. ONDANSETRON [Concomitant]
     Active Substance: ONDANSETRON
     Indication: VOMITING
     Dosage: UNK
     Dates: start: 20190125
  3. OMEPRAZOLE. [Concomitant]
     Active Substance: OMEPRAZOLE
     Indication: GASTRITIS
     Dosage: UNK
     Dates: start: 20190125
  4. BEDAQUILINE [Suspect]
     Active Substance: BEDAQUILINE
     Indication: PULMONARY TUBERCULOSIS
     Dosage: 100 MILLIGRAM, TIW
     Dates: start: 20190125
  5. DELAMANID [Suspect]
     Active Substance: DELAMANID
     Indication: PULMONARY TUBERCULOSIS
     Dosage: 50 MILLIGRAM, BID
     Dates: start: 20190125
  6. METOCLOPRAMIDE. [Concomitant]
     Active Substance: METOCLOPRAMIDE
     Indication: VOMITING
     Dosage: UNK
     Dates: start: 20190125
  7. GLYCOPYRROLATE (+) INDACATEROL MALEATE [Concomitant]
     Indication: DYSPNOEA
  8. IMIPENEM AND CILASTATIN [Suspect]
     Active Substance: CILASTATIN SODIUM\IMIPENEM
     Indication: PULMONARY TUBERCULOSIS
  9. CLOFAZIMINE [Suspect]
     Active Substance: CLOFAZIMINE
     Indication: PULMONARY TUBERCULOSIS
     Dosage: 100 MILLIGRAM, QD
     Dates: start: 20190125
  10. LINEZOLID. [Suspect]
     Active Substance: LINEZOLID
     Indication: PULMONARY TUBERCULOSIS
     Dosage: 600 MILLIGRAM, QD
     Dates: start: 20190125
  11. DERIPHYLLIN [Concomitant]
     Active Substance: ETOFYLLINE\THEOPHYLLINE
     Indication: DYSPNOEA
     Dosage: UNK
     Dates: start: 20190125

REACTIONS (11)
  - Blood magnesium decreased [Unknown]
  - White blood cell count increased [Unknown]
  - Thrombosis [Unknown]
  - Alanine aminotransferase increased [Unknown]
  - Aspartate aminotransferase increased [Unknown]
  - Abdominal pain [Unknown]
  - Haemoglobin decreased [Unknown]
  - Dyspnoea at rest [Unknown]
  - Pyrexia [Unknown]
  - Blood sodium decreased [Unknown]
  - Platelet count increased [Unknown]

NARRATIVE: CASE EVENT DATE: 20190418
